FAERS Safety Report 5218448-4 (Version None)
Quarter: 2007Q1

REPORT INFORMATION
  Report Type: 
  Country: None (occurrence: None)
  Receive Date: 20061201
  Receipt Date: 20061002
  Transmission Date: 20070707
  Serious: Yes (Death)
  Sender: FDA-Public Use
  Company Number: SPV1-2006-01163

PATIENT
  Age: 14 Year
  Sex: Male

DRUGS (1)
  1. ADDERALL 15 [Suspect]

REACTIONS (1)
  - SUDDEN CARDIAC DEATH [None]
